FAERS Safety Report 9736698 (Version 1)
Quarter: 2013Q4

REPORT INFORMATION
  Report Type: Spontaneous
  Country: US (occurrence: US)
  Receive Date: 20131206
  Receipt Date: 20131206
  Transmission Date: 20140711
  Serious: Yes (Other)
  Sender: FDA-Public Use
  Company Number: US-SA-2013SA126878

PATIENT
  Age: 85 Year
  Sex: Male

DRUGS (3)
  1. LANTUS [Suspect]
     Indication: TYPE 2 DIABETES MELLITUS
     Route: 058
     Dates: end: 2013
  2. GLIPIZIDE [Concomitant]
  3. SITAGLIPTIN PHOSPHATE [Concomitant]

REACTIONS (4)
  - Hypoglycaemia [Unknown]
  - Loss of consciousness [Unknown]
  - Overdose [Unknown]
  - Dysarthria [Unknown]
